FAERS Safety Report 18814474 (Version 8)
Quarter: 2021Q3

REPORT INFORMATION
  Report Type: Spontaneous
  Country: CA (occurrence: CA)
  Receive Date: 20210201
  Receipt Date: 20210812
  Transmission Date: 20211014
  Serious: Yes (Other)
  Sender: FDA-Public Use
  Company Number: CA-CELLTRION INC.-2020CA033428

PATIENT

DRUGS (13)
  1. INFLECTRA [Suspect]
     Active Substance: INFLIXIMAB-DYYB
     Dosage: 300 MG 8 WEEKS
     Route: 042
     Dates: start: 20200911, end: 20200911
  2. INFLECTRA [Suspect]
     Active Substance: INFLIXIMAB-DYYB
     Dosage: 300 MG 4 WEEKS
     Route: 042
     Dates: start: 20201106, end: 20201106
  3. INFLECTRA [Suspect]
     Active Substance: INFLIXIMAB-DYYB
     Dosage: 600 MG  EVERY 4 WEEKS
     Route: 042
     Dates: start: 20210331, end: 20210331
  4. IMURAN [Concomitant]
     Active Substance: AZATHIOPRINE
     Dosage: UNK
  5. INFLECTRA [Suspect]
     Active Substance: INFLIXIMAB-DYYB
     Dosage: 600 MG  EVERY 4 WEEKS
     Route: 042
     Dates: start: 20210428
  6. INFLECTRA [Suspect]
     Active Substance: INFLIXIMAB-DYYB
     Dosage: 600 MG , EVERY 4 WEEKS
     Route: 042
     Dates: start: 20210721
  7. AZATHIOPRINE. [Concomitant]
     Active Substance: AZATHIOPRINE
     Dosage: UNK
  8. INFLECTRA [Suspect]
     Active Substance: INFLIXIMAB-DYYB
     Dosage: 300 MG EVERY 8 WEEKS
     Route: 042
     Dates: start: 20210108, end: 20210108
  9. INFLECTRA [Suspect]
     Active Substance: INFLIXIMAB-DYYB
     Dosage: 500 MG EVERY 4 WEEKS
     Route: 042
  10. INFLECTRA [Suspect]
     Active Substance: INFLIXIMAB-DYYB
     Dosage: 600 MG , EVERY 4 WEEKS
     Route: 042
     Dates: start: 20210623
  11. MONOFERRIC [IRON ISOMALTOSIDE 1000] [Concomitant]
     Active Substance: IRON ISOMALTOSIDE 1000
     Dosage: 1000 MG
     Route: 042
  12. STELARA [Concomitant]
     Active Substance: USTEKINUMAB
     Dosage: UNK
  13. INFLECTRA [Suspect]
     Active Substance: INFLIXIMAB-DYYB
     Indication: COLITIS ULCERATIVE
     Dosage: 300 MG 8 WEEKS
     Route: 042
     Dates: start: 20200814, end: 20200814

REACTIONS (9)
  - Off label use [Unknown]
  - Neutropenia [Unknown]
  - Faecal calprotectin increased [Unknown]
  - Drug level below therapeutic [Unknown]
  - Off label use [Unknown]
  - Condition aggravated [Unknown]
  - Drug ineffective [Unknown]
  - Anaemia [Unknown]
  - Malaise [Unknown]

NARRATIVE: CASE EVENT DATE: 2020
